FAERS Safety Report 5619048-4 (Version None)
Quarter: 2008Q1

REPORT INFORMATION
  Report Type: 
  Country: None (occurrence: None)
  Receive Date: 20080207
  Receipt Date: 20080129
  Transmission Date: 20080703
  Serious: Yes (Other)
  Sender: FDA-Public Use
  Company Number: FR-PFIZER INC-2008005596

PATIENT
  Age: 4 Year
  Sex: Male

DRUGS (3)
  1. VFEND [Suspect]
     Indication: HEPATOSPLENIC CANDIDIASIS
     Dates: start: 20070830, end: 20071023
  2. VFEND [Suspect]
     Dates: start: 20071123, end: 20071224
  3. DRUG, UNSPECIFIED [Concomitant]

REACTIONS (8)
  - ALANINE AMINOTRANSFERASE INCREASED [None]
  - ANOREXIA [None]
  - ASPARTATE AMINOTRANSFERASE INCREASED [None]
  - DRUG TOXICITY [None]
  - GAMMA-GLUTAMYLTRANSFERASE INCREASED [None]
  - GENERAL PHYSICAL HEALTH DETERIORATION [None]
  - INFLAMMATION [None]
  - PYREXIA [None]
